FAERS Safety Report 14522345 (Version 1)
Quarter: 2018Q1

REPORT INFORMATION
  Report Type: Spontaneous
  Country: QA (occurrence: QA)
  Receive Date: 20180212
  Receipt Date: 20180212
  Transmission Date: 20180509
  Serious: Yes (Hospitalization, Other)
  Sender: FDA-Public Use
  Company Number: QA-MYLANLABS-2018M1009275

PATIENT
  Age: 51 Year
  Sex: Male

DRUGS (3)
  1. PREDNISOLONE. [Suspect]
     Active Substance: PREDNISOLONE
     Indication: COLITIS ULCERATIVE
     Dosage: 80MG/DAY
     Route: 048
  2. MESALAMINE. [Concomitant]
     Active Substance: MESALAMINE
     Indication: COLITIS ULCERATIVE
     Dosage: 3G/DAY
     Route: 065
  3. PREDSOL /00016202/ [Suspect]
     Active Substance: PREDNISOLONE SODIUM PHOSPHATE
     Indication: COLITIS ULCERATIVE
     Dosage: 20MG/DAY; ENEMA
     Route: 054

REACTIONS (7)
  - Haemoglobin decreased [None]
  - Procedural intestinal perforation [None]
  - Rectal perforation [Recovered/Resolved]
  - Abdominal wall disorder [Recovered/Resolved]
  - Gastrointestinal mucosa hyperaemia [None]
  - Pneumoperitoneum [None]
  - Scrotal swelling [Recovered/Resolved]
